FAERS Safety Report 23222170 (Version 4)
Quarter: 2024Q1

REPORT INFORMATION
  Report Type: Spontaneous
  Country: US (occurrence: US)
  Receive Date: 20231123
  Receipt Date: 20240118
  Transmission Date: 20240410
  Serious: No
  Sender: FDA-Public Use
  Company Number: US-PFIZER INC-202300373152

PATIENT
  Age: 15 Year
  Sex: Male
  Weight: 41.28 kg

DRUGS (2)
  1. GENOTROPIN [Suspect]
     Active Substance: SOMATROPIN
     Indication: Growth hormone deficiency
     Dosage: 2.4 MG
  2. GENOTROPIN [Suspect]
     Active Substance: SOMATROPIN
     Dosage: 2.2 MG, DAILY

REACTIONS (4)
  - Device delivery system issue [Unknown]
  - Poor quality device used [Unknown]
  - Device issue [Unknown]
  - Drug dose omission by device [Unknown]
